FAERS Safety Report 18513483 (Version 1)
Quarter: 2020Q4

REPORT INFORMATION
  Report Type: Spontaneous
  Country: FR (occurrence: FR)
  Receive Date: 20201118
  Receipt Date: 20201118
  Transmission Date: 20210114
  Serious: Yes (Death, Hospitalization, Other)
  Sender: FDA-Public Use
  Company Number: FR-ABBVIE-20P-056-3649784-00

PATIENT
  Age: 40 Year
  Sex: Female

DRUGS (5)
  1. ENANTONE LP [Suspect]
     Active Substance: LEUPROLIDE ACETATE
     Indication: BREAST CANCER METASTATIC
     Route: 065
     Dates: start: 201808, end: 202002
  2. PALBOCICLIB [Suspect]
     Active Substance: PALBOCICLIB
     Indication: BREAST CANCER METASTATIC
     Dosage: UNK
     Route: 065
     Dates: start: 201808, end: 202002
  3. FEMARA [Suspect]
     Active Substance: LETROZOLE
     Indication: BREAST CANCER METASTATIC
     Route: 065
     Dates: start: 201808, end: 202002
  4. PACLITAXEL. [Suspect]
     Active Substance: PACLITAXEL
     Dosage: 90 MILLIGRAM PER SQ METER
     Route: 042
     Dates: start: 202003, end: 2020
  5. PACLITAXEL. [Suspect]
     Active Substance: PACLITAXEL
     Indication: BREAST CANCER METASTATIC
     Dosage: 90 MILLIGRAM PER SQ METER
     Route: 042
     Dates: start: 20200424, end: 20200803

REACTIONS (7)
  - Generalised oedema [Fatal]
  - Hepatitis fulminant [Unknown]
  - Hepatic failure [Fatal]
  - Metastases to liver [Fatal]
  - Cell death [Unknown]
  - Anaemia [Unknown]
  - Acute kidney injury [Fatal]

NARRATIVE: CASE EVENT DATE: 2019
